FAERS Safety Report 5802354-8 (Version None)
Quarter: 2008Q3

REPORT INFORMATION
  Report Type: 
  Country: None (occurrence: None)
  Receive Date: 20080707
  Receipt Date: 20080626
  Transmission Date: 20090109
  Serious: Yes (Other)
  Sender: FDA-Public Use
  Company Number: US-AVENTIS-200814089US

PATIENT
  Age: 67 Year
  Sex: Male

DRUGS (13)
  1. CARAC [Suspect]
     Dosage: DOSE: UNK
     Route: 061
  2. CARAC [Suspect]
     Dosage: DOSE: UNK
     Route: 061
  3. POTASSIUM CHLORIDE [Concomitant]
     Dosage: DOSE: UNK
  4. FERREX [Concomitant]
     Dosage: DOSE: UNK
  5. GEMFIBROZIL [Concomitant]
     Dosage: DOSE: UNK
  6. ORAL ANTIDIABETICS [Concomitant]
     Dosage: DOSE: UNK
  7. PROTONIX [Concomitant]
     Dosage: DOSE: UNK
  8. VERAPAMIL [Concomitant]
     Dosage: DOSE: UNK
  9. LESCOL XL [Concomitant]
     Dosage: DOSE: UNK
  10. MAGNESIUM [Concomitant]
     Dosage: DOSE: UNK
  11. LISINOPRIL [Concomitant]
     Dosage: DOSE: UNK
  12. SODIUM BICARBONATE [Concomitant]
     Dosage: DOSE: UNK
  13. VITAMINS NOS [Concomitant]
     Dosage: DOSE: UNK

REACTIONS (5)
  - ARRHYTHMIA [None]
  - LETHARGY [None]
  - MALAISE [None]
  - RENAL FAILURE [None]
  - WEIGHT DECREASED [None]
